FAERS Safety Report 5164410-X (Version None)
Quarter: 2006Q4

REPORT INFORMATION
  Report Type: 
  Country: None (occurrence: None)
  Receive Date: 20061127
  Receipt Date: 20061127
  Transmission Date: 20070319
  Serious: Yes (Other)
  Sender: FDA-Public Use
  Company Number: None

PATIENT
  Sex: Male

DRUGS (2)
  1. POLYETHYLENE GLYCOL 3350 NF POWDER FOR ORAL SOLUTION [Suspect]
     Indication: CONSTIPATION
     Dosage: 1 CAPFUL TWICE A DAY VIA NG TUB
     Route: 048
  2. POLYETHYLENE GLYCOL 3350 NF POWDER FOR ORAL SOLUTION [Suspect]
     Dosage: 1 CAPFUL ONCE A DAY ORAL
     Route: 048

REACTIONS (1)
  - VOMITING [None]
